FAERS Safety Report 6998586-6 (Version None)
Quarter: 2010Q3

REPORT INFORMATION
  Report Type: 
  Country: None (occurrence: None)
  Receive Date: 20100920
  Receipt Date: 20100430
  Transmission Date: 20110219
  Serious: Yes (Other)
  Sender: FDA-Public Use
  Company Number: US-ASTRAZENECA-2007UW12328

PATIENT
  Age: 517 Month
  Sex: Female
  Weight: 68 kg

DRUGS (37)
  1. SEROQUEL [Suspect]
     Indication: DEPRESSION
     Dosage: 700 MG TO 900 MG
     Route: 048
     Dates: start: 19981001, end: 20010801
  2. SEROQUEL [Suspect]
     Indication: MAJOR DEPRESSION
     Dosage: 700 MG TO 900 MG
     Route: 048
     Dates: start: 19981001, end: 20010801
  3. SEROQUEL [Suspect]
     Indication: BIPOLAR DISORDER
     Dosage: 700 MG TO 900 MG
     Route: 048
     Dates: start: 19981001, end: 20010801
  4. SEROQUEL [Suspect]
     Indication: AFFECTIVE DISORDER
     Dosage: 700 MG TO 900 MG
     Route: 048
     Dates: start: 19981001, end: 20010801
  5. SEROQUEL [Suspect]
     Dosage: 700 - 900 MG
     Route: 048
     Dates: start: 19981001, end: 20001201
  6. SEROQUEL [Suspect]
     Dosage: 700 - 900 MG
     Route: 048
     Dates: start: 19981001, end: 20001201
  7. SEROQUEL [Suspect]
     Dosage: 700 - 900 MG
     Route: 048
     Dates: start: 19981001, end: 20001201
  8. SEROQUEL [Suspect]
     Dosage: 700 - 900 MG
     Route: 048
     Dates: start: 19981001, end: 20001201
  9. SEROQUEL [Suspect]
     Dosage: 50 MG TO 900 MG
     Route: 048
     Dates: start: 19990902
  10. SEROQUEL [Suspect]
     Dosage: 50 MG TO 900 MG
     Route: 048
     Dates: start: 19990902
  11. SEROQUEL [Suspect]
     Dosage: 50 MG TO 900 MG
     Route: 048
     Dates: start: 19990902
  12. SEROQUEL [Suspect]
     Dosage: 50 MG TO 900 MG
     Route: 048
     Dates: start: 19990902
  13. ZOLOFT [Concomitant]
     Indication: DEPRESSION
     Dosage: 50 MG TO 300 MG
     Dates: start: 19960315
  14. ZYPREXA [Concomitant]
     Indication: MAJOR DEPRESSION
     Dates: start: 19971209
  15. ZYPREXA [Concomitant]
     Indication: BIPOLAR DISORDER
     Dates: start: 19971209
  16. ZYPREXA [Concomitant]
     Indication: AFFECTIVE DISORDER
     Dates: start: 19971209
  17. ZYPREXA [Concomitant]
     Dates: start: 19970101, end: 19980101
  18. ZYPREXA [Concomitant]
     Dates: start: 19970101, end: 19980101
  19. ZYPREXA [Concomitant]
     Dates: start: 19970101, end: 19980101
  20. ZYPREXA [Concomitant]
     Dates: start: 20000101, end: 20001001
  21. ZYPREXA [Concomitant]
     Dates: start: 20000101, end: 20001001
  22. ZYPREXA [Concomitant]
     Dates: start: 20000101, end: 20001001
  23. SERZONE [Concomitant]
     Dosage: 150 MG TO 600 MG
     Dates: start: 20000225
  24. SERZONE [Concomitant]
     Dosage: 100 MG TO 150 MG
     Dates: start: 20000101
  25. ATIVAN [Concomitant]
     Indication: ANXIETY
     Dosage: 1.5 TO 2.5 MG
     Dates: start: 19990902
  26. ATIVAN [Concomitant]
     Dates: start: 19990101, end: 20000101
  27. GLUCOPHAGE [Concomitant]
     Dosage: 1000 MG TO 1500 MG
     Dates: start: 19980205
  28. NALTREXONE [Concomitant]
     Dates: start: 20000717
  29. LOXITANE [Concomitant]
     Dosage: 10 MG TO 40 MG
     Dates: start: 20000203
  30. XANAX [Concomitant]
     Dosage: 0.20 MG TO 0.25 MG
     Dates: start: 19961104
  31. XANAX [Concomitant]
     Dosage: 1 MG TO 2 MG
     Dates: start: 20030101, end: 20050101
  32. LANOXIN [Concomitant]
     Indication: SUPRAVENTRICULAR TACHYCARDIA
     Dates: start: 19930616
  33. ABILIFY [Concomitant]
     Dates: start: 20030101, end: 20060101
  34. GEODON [Concomitant]
     Dates: start: 20010101, end: 20050101
  35. NAVANE [Concomitant]
     Dates: start: 20010101
  36. PAXIL [Concomitant]
     Dosage: 20 MG TO 40 MG
     Dates: start: 20010101, end: 20020101
  37. PROZAC [Concomitant]
     Dosage: 20MG
     Dates: start: 20030101, end: 20060101

REACTIONS (5)
  - DIABETES MELLITUS [None]
  - OBESITY [None]
  - TARDIVE DYSKINESIA [None]
  - TYPE 2 DIABETES MELLITUS [None]
  - VISUAL IMPAIRMENT [None]
